FAERS Safety Report 19875044 (Version 2)
Quarter: 2025Q3

REPORT INFORMATION
  Report Type: Spontaneous
  Country: EU (occurrence: EU)
  Receive Date: 20210923
  Receipt Date: 20250821
  Transmission Date: 20251021
  Serious: Yes (Hospitalization, Other)
  Sender: MYLAN
  Company Number: EU-ARISTO PHARMA IBERIA S.L.-2021006429

PATIENT
  Age: 82 Year
  Sex: Female

DRUGS (28)
  1. PAROXETINE [Interacting]
     Active Substance: PAROXETINE
     Indication: Mixed anxiety and depressive disorder
  2. PAROXETINE [Interacting]
     Active Substance: PAROXETINE
     Indication: Depression
     Route: 065
  3. PAROXETINE [Interacting]
     Active Substance: PAROXETINE
     Route: 065
  4. PAROXETINE [Interacting]
     Active Substance: PAROXETINE
  5. DIAZEPAM\SULPIRIDE [Suspect]
     Active Substance: DIAZEPAM\SULPIRIDE
     Indication: Product used for unknown indication
  6. DIAZEPAM\SULPIRIDE [Suspect]
     Active Substance: DIAZEPAM\SULPIRIDE
     Route: 065
  7. DIAZEPAM\SULPIRIDE [Suspect]
     Active Substance: DIAZEPAM\SULPIRIDE
     Route: 065
  8. DIAZEPAM\SULPIRIDE [Suspect]
     Active Substance: DIAZEPAM\SULPIRIDE
  9. CHLORTHALIDONE [Interacting]
     Active Substance: CHLORTHALIDONE
     Indication: Cardiac failure
  10. CHLORTHALIDONE [Interacting]
     Active Substance: CHLORTHALIDONE
     Route: 065
  11. CHLORTHALIDONE [Interacting]
     Active Substance: CHLORTHALIDONE
     Route: 065
  12. CHLORTHALIDONE [Interacting]
     Active Substance: CHLORTHALIDONE
  13. TRAZODONE [Concomitant]
     Active Substance: TRAZODONE HYDROCHLORIDE
     Indication: Mixed anxiety and depressive disorder
  14. TRAZODONE [Concomitant]
     Active Substance: TRAZODONE HYDROCHLORIDE
     Indication: Depression
     Route: 065
  15. TRAZODONE [Concomitant]
     Active Substance: TRAZODONE HYDROCHLORIDE
     Route: 065
  16. TRAZODONE [Concomitant]
     Active Substance: TRAZODONE HYDROCHLORIDE
  17. DIAZEPAM [Concomitant]
     Active Substance: DIAZEPAM
     Indication: Mixed anxiety and depressive disorder
  18. DIAZEPAM [Concomitant]
     Active Substance: DIAZEPAM
     Indication: Depression
     Route: 065
  19. DIAZEPAM [Concomitant]
     Active Substance: DIAZEPAM
     Route: 065
  20. DIAZEPAM [Concomitant]
     Active Substance: DIAZEPAM
  21. ATENOLOL [Concomitant]
     Active Substance: ATENOLOL
     Indication: Hypertension
  22. ATENOLOL [Concomitant]
     Active Substance: ATENOLOL
     Route: 065
  23. ATENOLOL [Concomitant]
     Active Substance: ATENOLOL
     Route: 065
  24. ATENOLOL [Concomitant]
     Active Substance: ATENOLOL
  25. LORMETAZEPAM [Concomitant]
     Active Substance: LORMETAZEPAM
     Indication: Mixed anxiety and depressive disorder
  26. LORMETAZEPAM [Concomitant]
     Active Substance: LORMETAZEPAM
     Indication: Depression
     Route: 065
  27. LORMETAZEPAM [Concomitant]
     Active Substance: LORMETAZEPAM
     Route: 065
  28. LORMETAZEPAM [Concomitant]
     Active Substance: LORMETAZEPAM

REACTIONS (6)
  - Hyponatraemia [Recovered/Resolved]
  - Inappropriate antidiuretic hormone secretion [Recovered/Resolved]
  - Drug interaction [Recovered/Resolved]
  - Fall [Recovered/Resolved]
  - Somnolence [Recovered/Resolved]
  - Asthenia [Recovered/Resolved]
